FAERS Safety Report 7105149-0 (Version None)
Quarter: 2010Q4

REPORT INFORMATION
  Report Type: 
  Country: None (occurrence: None)
  Receive Date: 20101116
  Receipt Date: 20100814
  Transmission Date: 20110411
  Serious: No
  Sender: FDA-Public Use
  Company Number: US-ABBOTT-10P-163-0663990-00

PATIENT
  Sex: Male
  Weight: 79.904 kg

DRUGS (10)
  1. SIMCOR [Suspect]
     Indication: HYPERLIPIDAEMIA
     Dosage: 500/20MG AT BED TIME
     Dates: start: 20100810
  2. ALTACE [Concomitant]
     Indication: PRODUCT USED FOR UNKNOWN INDICATION
  3. TRILIPIX [Concomitant]
     Indication: PRODUCT USED FOR UNKNOWN INDICATION
  4. METFORMIN [Concomitant]
     Indication: PRODUCT USED FOR UNKNOWN INDICATION
  5. LOVAZA [Concomitant]
     Indication: PRODUCT USED FOR UNKNOWN INDICATION
  6. PRANDIN [Concomitant]
     Indication: PRODUCT USED FOR UNKNOWN INDICATION
  7. RELAFEN [Concomitant]
     Indication: PRODUCT USED FOR UNKNOWN INDICATION
  8. PERCOCET [Concomitant]
     Indication: PRODUCT USED FOR UNKNOWN INDICATION
  9. OXYCONTIN [Concomitant]
     Indication: PRODUCT USED FOR UNKNOWN INDICATION
  10. XANAX [Concomitant]
     Indication: PRODUCT USED FOR UNKNOWN INDICATION

REACTIONS (1)
  - HEADACHE [None]
